FAERS Safety Report 7567960-1 (Version None)
Quarter: 2011Q2

REPORT INFORMATION
  Report Type: 
  Country: None (occurrence: None)
  Receive Date: 20110623
  Receipt Date: 20110614
  Transmission Date: 20111010
  Serious: Yes (Other)
  Sender: FDA-Public Use
  Company Number: CA-BRISTOL-MYERS SQUIBB COMPANY-15843634

PATIENT
  Age: 63 Year
  Sex: Female

DRUGS (6)
  1. CRESTOR [Suspect]
  2. LIPITOR [Suspect]
  3. ASPIRIN [Concomitant]
  4. CORDARONE [Concomitant]
     Indication: HEART RATE
  5. FUROSEMIDE [Concomitant]
  6. PRAVACHOL [Suspect]

REACTIONS (4)
  - ASTHENIA [None]
  - PAIN [None]
  - CONSTIPATION [None]
  - THROAT TIGHTNESS [None]
